FAERS Safety Report 18099800 (Version 4)
Quarter: 2020Q4

REPORT INFORMATION
  Report Type: Report from Study
  Country: CO (occurrence: CO)
  Receive Date: 20200731
  Receipt Date: 20201126
  Transmission Date: 20210113
  Serious: Yes (Death, Hospitalization, Other)
  Sender: FDA-Public Use
  Company Number: CO-BRISTOL-MYERS SQUIBB COMPANY-BMS-2020-039630

PATIENT
  Age: 59 Year
  Sex: Male

DRUGS (2)
  1. NIVOLUMAB [Suspect]
     Active Substance: NIVOLUMAB
     Indication: RENAL CANCER
     Dosage: 199 MILLIGRAM, Q3WK
     Route: 042
     Dates: start: 20200430
  2. YERVOY [Suspect]
     Active Substance: IPILIMUMAB
     Indication: RENAL CANCER
     Dosage: 66 MILLIGRAM, Q3WK
     Route: 042
     Dates: start: 20200430

REACTIONS (2)
  - Prescribed overdose [Unknown]
  - COVID-19 [Fatal]

NARRATIVE: CASE EVENT DATE: 20200518
